FAERS Safety Report 12697872 (Version 1)
Quarter: 2016Q3

REPORT INFORMATION
  Report Type: Spontaneous
  Country: None (occurrence: None)
  Receive Date: 20160829
  Receipt Date: 20160829
  Transmission Date: 20161109
  Serious: Yes (Life-Threatening, Hospitalization)
  Sender: FDA-Public Use
  Company Number: None

PATIENT
  Age: 63 Year
  Sex: Male

DRUGS (2)
  1. CLOPIDOGREL, 75 MG [Suspect]
     Active Substance: CLOPIDOGREL BISULFATE
     Indication: STENT PLACEMENT
     Route: 048
     Dates: start: 20160803
  2. ASPIRIN. [Concomitant]
     Active Substance: ASPIRIN

REACTIONS (9)
  - Haematochezia [None]
  - Drug hypersensitivity [None]
  - Tremor [None]
  - Tunnel vision [None]
  - Chest pain [None]
  - Vomiting [None]
  - Dyspnoea [None]
  - Dizziness [None]
  - Neuropathy peripheral [None]

NARRATIVE: CASE EVENT DATE: 20160803
